FAERS Safety Report 11677144 (Version 2)
Quarter: 2015Q4

REPORT INFORMATION
  Report Type: Spontaneous
  Country: SG (occurrence: SG)
  Receive Date: 20151028
  Receipt Date: 20151028
  Transmission Date: 20160304
  Serious: Yes (Hospitalization)
  Sender: FDA-Public Use
  Company Number: SG-BAYER-2015-448963

PATIENT
  Age: 25 Year
  Sex: Male

DRUGS (3)
  1. CIPROFLOXACIN. [Suspect]
     Active Substance: CIPROFLOXACIN
     Dosage: UNK
  2. ACETYLSALICYLIC ACID({=100 MG) [Suspect]
     Active Substance: ASPIRIN
  3. PROCAINE PENICILLIN (PENICILLIN G PROCAINE\PENICILLIN G SODIUM ) [Suspect]
     Active Substance: PENICILLIN G PROCAINE\PENICILLIN G SODIUM
     Dosage: UNK

REACTIONS (1)
  - Anaphylactic reaction [Unknown]

NARRATIVE: CASE EVENT DATE: 20150921
